FAERS Safety Report 9009932 (Version 1)
Quarter: 2013Q1

REPORT INFORMATION
  Report Type: Spontaneous
  Country: US (occurrence: US)
  Receive Date: 20130110
  Receipt Date: 20130110
  Transmission Date: 20140127
  Serious: Yes (Life-Threatening, Other)
  Sender: FDA-Public Use
  Company Number: US-009507513-1004USA01806

PATIENT
  Age: 33 Year
  Sex: Male
  Weight: 74.84 kg

DRUGS (2)
  1. SINGULAIR [Suspect]
     Indication: ASTHMA
     Dosage: 10 MG, QD
     Route: 048
     Dates: start: 20090317, end: 20090905
  2. SINGULAIR [Suspect]
     Indication: RHINITIS ALLERGIC

REACTIONS (21)
  - Anxiety [Unknown]
  - Apathy [Unknown]
  - Asthenia [Unknown]
  - Depression [Unknown]
  - Drug withdrawal syndrome [Unknown]
  - Emotional disorder [Unknown]
  - Feeling abnormal [Unknown]
  - Blood glucose increased [Unknown]
  - Low density lipoprotein increased [Unknown]
  - Heart rate irregular [Unknown]
  - Throat tightness [Unknown]
  - Choking sensation [Unknown]
  - Dyspnoea [Unknown]
  - Hypoaesthesia [Unknown]
  - Hypoaesthesia [Unknown]
  - Dysarthria [Unknown]
  - Morbid thoughts [Unknown]
  - Nervous system disorder [Unknown]
  - Insomnia [Unknown]
  - Suicidal ideation [Unknown]
  - Adverse event [Unknown]
